FAERS Safety Report 25073427 (Version 1)
Quarter: 2025Q1

REPORT INFORMATION
  Report Type: Report from Study
  Country: US (occurrence: US)
  Receive Date: 20250313
  Receipt Date: 20250313
  Transmission Date: 20250409
  Serious: Yes (Other)
  Sender: ACADIA PHARMACEUTICALS
  Company Number: US-ACADIA PHARMACEUTICALS INC.-ACA-2025-PIM-002638

PATIENT
  Age: 66 Year
  Sex: Female

DRUGS (26)
  1. NUPLAZID [Suspect]
     Active Substance: PIMAVANSERIN TARTRATE
     Indication: Parkinson^s disease
     Dosage: 34 MILLIGRAM, QD
     Route: 048
     Dates: start: 20241204
  2. NYSTATIN [Concomitant]
     Active Substance: NYSTATIN
  3. CLOTRIMAZOLE [Concomitant]
     Active Substance: CLOTRIMAZOLE
  4. OMEPRAZOLE [Concomitant]
     Active Substance: OMEPRAZOLE
  5. VITAMIN D3 [Concomitant]
     Active Substance: CHOLECALCIFEROL
  6. FERROUS SULFATE [Concomitant]
     Active Substance: FERROUS SULFATE
  7. CALCIUM\CHOLECALCIFEROL [Concomitant]
     Active Substance: CALCIUM\CHOLECALCIFEROL
  8. VITAMIN B12 [Concomitant]
     Active Substance: CYANOCOBALAMIN
  9. VITAMIN C [Concomitant]
     Active Substance: ASCORBIC ACID
  10. INCRUSE ELLIPTA [Concomitant]
     Active Substance: UMECLIDINIUM BROMIDE
  11. ASPIRIN [Concomitant]
     Active Substance: ASPIRIN
  12. TUSSIN DM [Concomitant]
     Active Substance: DEXTROMETHORPHAN HYDROBROMIDE\GUAIFENESIN
  13. ALENDRONATE [Concomitant]
     Active Substance: ALENDRONATE SODIUM
  14. HYDROCHLOROTHIAZIDE [Concomitant]
     Active Substance: HYDROCHLOROTHIAZIDE
  15. GABAPENTIN [Concomitant]
     Active Substance: GABAPENTIN
  16. LIDOCAINE [Concomitant]
     Active Substance: LIDOCAINE
  17. IBUPROFEN [Concomitant]
     Active Substance: IBUPROFEN
     Dates: end: 20250304
  18. LISINOPRIL [Concomitant]
     Active Substance: LISINOPRIL
  19. PREDNISONE [Concomitant]
     Active Substance: PREDNISONE
  20. BENZONATATE [Concomitant]
     Active Substance: BENZONATATE
  21. ALPRAZOLAM [Concomitant]
     Active Substance: ALPRAZOLAM
  22. ALBUTEROL SULFATE [Concomitant]
     Active Substance: ALBUTEROL SULFATE
  23. NICOTINE [Concomitant]
     Active Substance: NICOTINE
  24. LAMOTRIGINE [Concomitant]
     Active Substance: LAMOTRIGINE
  25. DICLOFENAC SODIUM [Concomitant]
     Active Substance: DICLOFENAC SODIUM
  26. CAPLYTA [Concomitant]
     Active Substance: LUMATEPERONE

REACTIONS (12)
  - Hallucination [Not Recovered/Not Resolved]
  - Visual impairment [Not Recovered/Not Resolved]
  - Headache [Not Recovered/Not Resolved]
  - Dehydration [Not Recovered/Not Resolved]
  - Migraine [Not Recovered/Not Resolved]
  - Night sweats [Not Recovered/Not Resolved]
  - Weight increased [Not Recovered/Not Resolved]
  - Delusion [Not Recovered/Not Resolved]
  - Photosensitivity reaction [Not Recovered/Not Resolved]
  - Menopausal symptoms [Not Recovered/Not Resolved]
  - Nausea [Not Recovered/Not Resolved]
  - Somnolence [Not Recovered/Not Resolved]

NARRATIVE: CASE EVENT DATE: 20241205
